FAERS Safety Report 16749810 (Version 3)
Quarter: 2019Q4

REPORT INFORMATION
  Report Type: Report from Study
  Country: FR (occurrence: FR)
  Receive Date: 20190828
  Receipt Date: 20191128
  Transmission Date: 20200122
  Serious: Yes (Other)
  Sender: FDA-Public Use
  Company Number: PHHO2019FR008530

PATIENT
  Age: 53 Year
  Sex: Male
  Weight: 67 kg

DRUGS (6)
  1. CYTARABINE. [Suspect]
     Active Substance: CYTARABINE
     Indication: ACUTE MYELOID LEUKAEMIA
     Dosage: 386 MG, D1 D2 D3 D4 D5 D6 D7, 200 MG/M^2
     Route: 041
     Dates: start: 20190616
  2. CANCIDAS [Concomitant]
     Active Substance: CASPOFUNGIN ACETATE
     Indication: INFECTION PROPHYLAXIS
     Dosage: 70 MG, QD
     Route: 048
     Dates: start: 20190701
  3. DAUNORUBICIN [Suspect]
     Active Substance: DAUNORUBICIN
     Indication: ACUTE MYELOID LEUKAEMIA
     Dosage: 170 MG, D1 D2 D3, 90 MG/M^2
     Route: 041
     Dates: start: 20190616
  4. CGP 41251 / PKC 412A [Suspect]
     Active Substance: MIDOSTAURIN
     Indication: ACUTE MYELOID LEUKAEMIA
     Dosage: 100 MG, EVERY 2 DAYS
     Route: 048
     Dates: start: 20190624, end: 20190701
  5. NOXAFIL [Concomitant]
     Active Substance: POSACONAZOLE
     Indication: INFECTION PROPHYLAXIS
     Dosage: 300 MG, BID
     Route: 048
     Dates: start: 20190622, end: 20190629
  6. VANCOMYCIN [Concomitant]
     Active Substance: VANCOMYCIN
     Indication: INFECTION PROPHYLAXIS
     Dosage: UNK
     Route: 065
     Dates: start: 20190621

REACTIONS (2)
  - Hyperbilirubinaemia [Recovered/Resolved]
  - Electrocardiogram QT prolonged [Recovered/Resolved]

NARRATIVE: CASE EVENT DATE: 20190624
